FAERS Safety Report 6486204-5 (Version None)
Quarter: 2009Q4

REPORT INFORMATION
  Report Type: 
  Country: None (occurrence: None)
  Receive Date: 20091207
  Receipt Date: 20091126
  Transmission Date: 20100525
  Serious: Yes (Other)
  Sender: FDA-Public Use
  Company Number: 09-001925

PATIENT
  Sex: Female

DRUGS (1)
  1. LOESTRIN 24 FE [Suspect]
     Dosage: 20/1000 MCG, ORAL
     Route: 048

REACTIONS (3)
  - HALLUCINATION [None]
  - SUICIDAL IDEATION [None]
  - UNEVALUABLE EVENT [None]
